FAERS Safety Report 13814715 (Version 3)
Quarter: 2018Q1

REPORT INFORMATION
  Report Type: Report from Study
  Country: JP (occurrence: JP)
  Receive Date: 20170731
  Receipt Date: 20180222
  Transmission Date: 20180508
  Serious: Yes (Other)
  Sender: FDA-Public Use
  Company Number: JP-VIFOR (INTERNATIONAL) INC.-VIT-2017-08097

PATIENT
  Age: 59 Year
  Sex: Male
  Weight: 52.3 kg

DRUGS (33)
  1. AMLODIPINE BESILATE [Concomitant]
     Active Substance: AMLODIPINE BESYLATE
     Route: 048
     Dates: end: 20161102
  2. CALBLOCK [Concomitant]
     Active Substance: AZELNIDIPINE
     Route: 048
  3. MAXACALCITOL [Concomitant]
     Active Substance: MAXACALCITOL
     Indication: HYPERPARATHYROIDISM SECONDARY
     Dates: end: 20160620
  4. MAXACALCITOL [Concomitant]
     Active Substance: MAXACALCITOL
     Dates: start: 20160912, end: 20170515
  5. MAXACALCITOL [Concomitant]
     Active Substance: MAXACALCITOL
     Dates: start: 20170515
  6. EPOETIN ALFA [Concomitant]
     Active Substance: ERYTHROPOIETIN
     Dates: end: 20160921
  7. VELPHORO [Suspect]
     Active Substance: FERRIC OXYHYDROXIDE
     Indication: HYPERPHOSPHATAEMIA
     Route: 048
     Dates: start: 20160518
  8. TAKEPRON [Concomitant]
     Active Substance: LANSOPRAZOLE
     Route: 048
  9. AZILVA [Concomitant]
     Active Substance: AZILSARTAN KAMEDOXOMIL
     Route: 048
  10. POSCARL [Concomitant]
     Route: 048
  11. AMLODIPINE [Concomitant]
     Active Substance: AMLODIPINE BESYLATE
     Route: 048
     Dates: start: 20161102
  12. NIFIDIPINE L [Concomitant]
     Route: 048
  13. GOODMIN [Concomitant]
     Active Substance: BROTIZOLAM
     Route: 048
  14. BRUFEN [Concomitant]
     Active Substance: IBUPROFEN
     Route: 048
     Dates: start: 20160715, end: 20160801
  15. LOXONIN [Concomitant]
     Active Substance: LOXOPROFEN SODIUM
     Route: 050
     Dates: start: 20170531, end: 20170531
  16. PARSABIV [Suspect]
     Active Substance: ETELCALCETIDE HYDROCHLORIDE
     Indication: HYPERPARATHYROIDISM SECONDARY
     Route: 040
     Dates: start: 20170410
  17. CALCIUM CARBONATE. [Concomitant]
     Active Substance: CALCIUM CARBONATE
     Indication: HYPERPHOSPHATAEMIA
     Route: 048
     Dates: end: 20160706
  18. FOLIAMIN [Concomitant]
     Active Substance: FOLIC ACID
     Route: 048
     Dates: end: 20170525
  19. REGPARA [Concomitant]
     Active Substance: CINACALCET HYDROCHLORIDE
     Indication: HYPERPARATHYROIDISM SECONDARY
     Route: 048
     Dates: end: 20170327
  20. REMITCH [Concomitant]
     Active Substance: NALFURAFINE HYDROCHLORIDE
     Route: 048
  21. POSCARL [Concomitant]
     Route: 048
     Dates: end: 20170313
  22. MAXACALCITOL [Concomitant]
     Active Substance: MAXACALCITOL
     Dates: start: 20160708, end: 20160912
  23. EPOETIN ALFA [Concomitant]
     Active Substance: ERYTHROPOIETIN
     Dates: start: 20170619, end: 20170721
  24. SANCOBA [Concomitant]
     Active Substance: CYANOCOBALAMIN
     Route: 050
     Dates: start: 20160620, end: 20160620
  25. EPOETIN ALFA [Concomitant]
     Active Substance: ERYTHROPOIETIN
     Dates: start: 20161019, end: 20170619
  26. ALDOMET [Concomitant]
     Active Substance: METHYLDOPA
     Route: 048
     Dates: start: 20170224, end: 20170623
  27. MAXACALCITOL [Concomitant]
     Active Substance: MAXACALCITOL
     Dates: start: 20160620, end: 20160708
  28. EPOETIN ALFA [Concomitant]
     Active Substance: ERYTHROPOIETIN
     Dates: start: 20160921, end: 20161019
  29. ARGAMATE [Concomitant]
     Active Substance: CALCIUM POLYSTYRENE SULFONATE
     Route: 048
     Dates: start: 20170313
  30. WYTENS [Concomitant]
     Active Substance: GUANABENZ ACETATE
     Route: 048
  31. YOUPATCH [Concomitant]
     Route: 050
  32. FESIN [Concomitant]
     Active Substance: IRON SUCROSE
     Dates: start: 20160617, end: 20160711
  33. SANCOBA [Concomitant]
     Active Substance: CYANOCOBALAMIN
     Route: 050
     Dates: start: 20170118, end: 20170118

REACTIONS (2)
  - Hypothyroidism [Not Recovered/Not Resolved]
  - Rash [Recovered/Resolved]

NARRATIVE: CASE EVENT DATE: 20161112
